FAERS Safety Report 13257613 (Version 1)
Quarter: 2017Q1

REPORT INFORMATION
  Report Type: Spontaneous
  Country: US (occurrence: US)
  Receive Date: 20170221
  Receipt Date: 20170221
  Transmission Date: 20170428
  Serious: No
  Sender: FDA-Public Use
  Company Number: US-LANTHEUS-LMI-2016-00191

PATIENT
  Age: 62 Year
  Sex: Male
  Weight: 106 kg

DRUGS (1)
  1. DEFINITY [Suspect]
     Active Substance: PERFLUTREN
     Indication: STRESS ECHOCARDIOGRAM
     Dosage: 4 ML .5 CC OF PRESERVATIVE-FREE NORMAL SALINE WITH 1.5 CC OF DEFINITY
     Route: 040
     Dates: start: 20160405, end: 20160405

REACTIONS (5)
  - Dyspnoea [Recovered/Resolved]
  - Pruritus generalised [Recovered/Resolved]
  - Cough [Recovered/Resolved]
  - Dermatitis bullous [Not Recovered/Not Resolved]
  - Urticaria [Not Recovered/Not Resolved]

NARRATIVE: CASE EVENT DATE: 20160405
